FAERS Safety Report 8651890 (Version 2)
Quarter: 2012Q4

REPORT INFORMATION
  Report Type: Spontaneous
  Country: CR (occurrence: None)
  Receive Date: 20120619
  Receipt Date: 20120822
  Transmission Date: 20130627
  Serious: Yes (Other)
  Sender: FDA-Public Use
  Company Number: DSA_57864_2012

PATIENT
  Age: 25 Year
  Sex: Female

DRUGS (1)
  1. WELLBUTRIN [Suspect]
     Indication: DYSTHYMIC DISORDER
     Dates: start: 201205, end: 201205

REACTIONS (6)
  - Bronchospasm [None]
  - Face oedema [None]
  - Laryngeal oedema [None]
  - Urticaria [None]
  - Rash [None]
  - Dermatitis contact [None]
